FAERS Safety Report 9498930 (Version 2)
Quarter: 2014Q1

REPORT INFORMATION
  Report Type: Spontaneous
  Country: BE (occurrence: BE)
  Receive Date: 20130904
  Receipt Date: 20140210
  Transmission Date: 20141002
  Serious: No
  Sender: FDA-Public Use
  Company Number: BE-ELI_LILLY_AND_COMPANY-BE201308007895

PATIENT
  Age: 53 Year
  Sex: Female
  Weight: 54 kg

DRUGS (8)
  1. CYMBALTA [Suspect]
     Indication: DEPRESSION
     Dosage: UNK, UNKNOWN
     Route: 048
     Dates: start: 20100810, end: 20101202
  2. CYMBALTA [Suspect]
     Dosage: 1 DF, UNKNOWN
     Route: 065
     Dates: start: 201209
  3. ALPRAZOLAM [Concomitant]
     Dosage: UNK, UNKNOWN
     Route: 065
  4. ZOCOR [Concomitant]
     Indication: HYPERCHOLESTEROLAEMIA
     Dosage: 40 MG, QD
     Route: 048
     Dates: start: 20080701
  5. ZESTRIL [Concomitant]
     Indication: HYPERTENSION
     Dosage: 20 MG, QD
     Route: 048
     Dates: start: 20070107
  6. ASAFLOW [Concomitant]
     Dosage: 1 DF, QD
     Route: 065
  7. EMCONCOR [Concomitant]
     Dosage: 80 MG, QD
     Route: 065
  8. ZOLPIDEM [Concomitant]
     Dosage: UNK, UNKNOWN
     Route: 065

REACTIONS (3)
  - Diplopia [Recovered/Resolved]
  - Amaurosis [Recovered/Resolved]
  - Mydriasis [Unknown]
